FAERS Safety Report 25266595 (Version 1)
Quarter: 2025Q2

REPORT INFORMATION
  Report Type: Spontaneous
  Country: IT (occurrence: IT)
  Receive Date: 20250505
  Receipt Date: 20250505
  Transmission Date: 20250717
  Serious: Yes (Death, Other)
  Sender: NOVITIUM PHARMA
  Company Number: IT-NOVITIUMPHARMA-2025ITNVP01063

PATIENT
  Age: 44 Year
  Sex: Female

DRUGS (3)
  1. FLUOXETINE [Suspect]
     Active Substance: FLUOXETINE HYDROCHLORIDE
     Indication: Product used for unknown indication
     Route: 042
  2. FLUOXETINE [Suspect]
     Active Substance: FLUOXETINE HYDROCHLORIDE
     Route: 045
  3. NORFLUOXETINE [Concomitant]
     Active Substance: NORFLUOXETINE
     Indication: Product used for unknown indication

REACTIONS (3)
  - Cardiac failure acute [Fatal]
  - Toxicity to various agents [Fatal]
  - Drug abuse [Fatal]
